FAERS Safety Report 6121557 (Version 5)
Quarter: 2017Q3

REPORT INFORMATION
  Report Type: Report from Study
  Country: JP (occurrence: JP)
  Receive Date: 20060905
  Receipt Date: 20170915
  Transmission Date: 20171128
  Serious: Yes (Death, Other)
  Sender: FDA-Public Use
  Company Number: JP-BRISTOL-MYERS SQUIBB COMPANY-13495734

PATIENT
  Age: 58 Year
  Sex: Male

DRUGS (4)
  1. MYTELASE [Concomitant]
     Active Substance: AMBENONIUM CHLORIDE
     Indication: MUSCULAR WEAKNESS
     Dosage: UNK
     Route: 048
     Dates: start: 20060825, end: 20060827
  2. NEUTROGIN [Suspect]
     Active Substance: LENOGRASTIM
     Indication: NEUTROPHIL COUNT DECREASED
     Dosage: UNK
     Route: 058
     Dates: start: 20060814, end: 20060814
  3. PARAPLATIN [Suspect]
     Active Substance: CARBOPLATIN
     Indication: THYMOMA MALIGNANT
     Dosage: 550 MG, QMO
     Route: 041
     Dates: start: 20060711, end: 20060802
  4. PACLITAXEL. [Suspect]
     Active Substance: PACLITAXEL
     Indication: THYMOMA MALIGNANT
     Dosage: 330 MG, QMO
     Route: 041
     Dates: start: 20060711, end: 20060802

REACTIONS (6)
  - Rash [Recovered/Resolved]
  - Aspartate aminotransferase increased [Fatal]
  - Rhabdomyolysis [Fatal]
  - Alanine aminotransferase increased [Fatal]
  - Blood creatine phosphokinase increased [Fatal]
  - Infection [Fatal]

NARRATIVE: CASE EVENT DATE: 20060819
